FAERS Safety Report 7753122-1 (Version None)
Quarter: 2011Q3

REPORT INFORMATION
  Report Type: 
  Country: None (occurrence: None)
  Receive Date: 20110915
  Receipt Date: 20110912
  Transmission Date: 20111222
  Serious: Yes (Hospitalization, Other)
  Sender: FDA-Public Use
  Company Number: US-PFIZER INC-2011128604

PATIENT
  Sex: Female

DRUGS (18)
  1. ADVAIR DISKUS 100/50 [Concomitant]
     Indication: ASTHMA
     Dosage: UNK
     Dates: start: 20050101
  2. PAROXETINE [Concomitant]
     Indication: PANIC ATTACK
  3. AMBIEN [Concomitant]
     Indication: INSOMNIA
     Dosage: UNK
     Dates: start: 20050101
  4. AMLODIPINE BESILATE [Concomitant]
     Indication: HYPERTENSION
     Dosage: UNK
     Dates: start: 20070101, end: 20100101
  5. PREDNISONE [Concomitant]
     Indication: HYPERSENSITIVITY
     Dosage: UNK
     Dates: start: 20070101
  6. PAROXETINE [Concomitant]
     Indication: ANXIETY
  7. ALBUTEROL [Concomitant]
     Indication: ASTHMA
     Dosage: UNK
     Dates: start: 20050101
  8. AZITHROMYCIN [Concomitant]
     Indication: ANTIBIOTIC THERAPY
     Dosage: UNK
     Dates: start: 20070101, end: 20090101
  9. PAXIL [Concomitant]
     Indication: ANXIETY
  10. CLARINEX [Concomitant]
     Indication: HYPERSENSITIVITY
     Dosage: UNK
     Dates: start: 20060101
  11. CHANTIX [Suspect]
     Indication: SMOKING CESSATION THERAPY
     Dosage: 0.5/ 1 MG
     Dates: start: 20080424, end: 20080601
  12. CHANTIX [Suspect]
     Dosage: 0.5/ 1 MG
     Dates: start: 20090901, end: 20091201
  13. SINGULAIR [Concomitant]
     Indication: ASTHMA
     Dosage: UNK
     Dates: start: 20080101
  14. PAXIL [Concomitant]
     Indication: DEPRESSION
     Dosage: UNK
     Dates: start: 20070101, end: 20090101
  15. COMBIVENT [Concomitant]
     Indication: ASTHMA
     Dosage: UNK
     Dates: start: 20050101
  16. PAXIL [Concomitant]
     Indication: PANIC ATTACK
  17. PAROXETINE [Concomitant]
     Indication: DEPRESSION
     Dosage: UNK
     Dates: start: 20070101, end: 20090101
  18. PREDNISONE [Concomitant]
     Indication: ARTHRITIS

REACTIONS (7)
  - INJURY [None]
  - JOINT INJURY [None]
  - ANXIETY [None]
  - PAIN [None]
  - LOSS OF CONSCIOUSNESS [None]
  - POST-TRAUMATIC STRESS DISORDER [None]
  - DEPRESSION [None]
